FAERS Safety Report 6650610-6 (Version None)
Quarter: 2010Q1

REPORT INFORMATION
  Report Type: 
  Country: None (occurrence: None)
  Receive Date: 20100325
  Receipt Date: 20100308
  Transmission Date: 20100710
  Serious: No
  Sender: FDA-Public Use
  Company Number: US-BIOGENIDEC-2010BI007975

PATIENT
  Sex: Female

DRUGS (2)
  1. AVONEX [Suspect]
     Indication: MULTIPLE SCLEROSIS
     Route: 030
     Dates: start: 19981101, end: 20080901
  2. AVONEX [Suspect]
     Route: 030
     Dates: start: 20090101

REACTIONS (2)
  - DIZZINESS [None]
  - NASOPHARYNGITIS [None]
